FAERS Safety Report 9579897 (Version 1)
Quarter: 2013Q3

REPORT INFORMATION
  Report Type: Spontaneous
  Country: US (occurrence: None)
  Receive Date: 20130930
  Receipt Date: 20130930
  Transmission Date: 20140515
  Serious: Yes (Disabling)
  Sender: FDA-Public Use
  Company Number: None

PATIENT
  Age: 4 Year
  Sex: Male
  Weight: 13.61 kg

DRUGS (1)
  1. BOTOX [Suspect]
     Dates: start: 20130606, end: 20130606

REACTIONS (11)
  - Lethargy [None]
  - Mobility decreased [None]
  - Epistaxis [None]
  - Nasopharyngitis [None]
  - Conjunctivitis [None]
  - Oropharyngeal pain [None]
  - Ear infection [None]
  - Bronchitis [None]
  - Dysphagia [None]
  - Aspiration [None]
  - Constipation [None]
